FAERS Safety Report 7233453-4 (Version None)
Quarter: 2011Q1

REPORT INFORMATION
  Report Type: 
  Country: None (occurrence: None)
  Receive Date: 20110119
  Receipt Date: 20110111
  Transmission Date: 20110831
  Serious: Yes (Hospitalization, Other)
  Sender: FDA-Public Use
  Company Number: JP-PFIZER INC-2010164727

PATIENT
  Age: 50 Year
  Sex: Female
  Weight: 51.3 kg

DRUGS (13)
  1. CELLCEPT [Concomitant]
     Dosage: UNK
  2. BIOFERMIN [Concomitant]
     Dosage: UNK
     Route: 048
  3. NELBON [Concomitant]
     Dosage: UNK
     Route: 048
  4. TORASEMIDE [Concomitant]
     Dosage: UNK
     Route: 048
  5. CALONAL [Concomitant]
     Dosage: UNK
     Route: 048
  6. MEDROL [Concomitant]
     Dosage: UNK
     Route: 048
  7. ATELEC [Concomitant]
     Dosage: UNK
  8. TAKEPRON [Concomitant]
     Dosage: UNK
  9. FERROUS CITRATE [Concomitant]
     Dosage: UNK
     Route: 048
  10. ALFAROL [Concomitant]
     Dosage: UNK
     Route: 048
  11. TACROLIMUS [Suspect]
     Indication: RENAL TRANSPLANT
     Dosage: 7 MG, 1X/DAY
     Route: 048
     Dates: start: 20091101
  12. TACROLIMUS [Suspect]
     Indication: RENAL FAILURE CHRONIC
  13. LIPITOR [Suspect]
     Indication: HYPERLIPIDAEMIA
     Dosage: 10 MG, 1X/DAY
     Route: 048
     Dates: start: 20101026, end: 20101102

REACTIONS (3)
  - BONE MARROW FAILURE [None]
  - MALAISE [None]
  - PANCYTOPENIA [None]
